FAERS Safety Report 18697286 (Version 6)
Quarter: 2022Q3

REPORT INFORMATION
  Report Type: Spontaneous
  Country: US (occurrence: US)
  Receive Date: 20210104
  Receipt Date: 20220929
  Transmission Date: 20221026
  Serious: Yes (Other)
  Sender: FDA-Public Use
  Company Number: US-PFIZER INC-2016603454

PATIENT
  Age: 70 Year
  Sex: Female
  Weight: 63.5 kg

DRUGS (4)
  1. PREMARIN [Suspect]
     Active Substance: ESTROGENS, CONJUGATED
     Indication: Hormone replacement therapy
     Dosage: UNK, 1X/DAY
  2. PREMARIN [Suspect]
     Active Substance: ESTROGENS, CONJUGATED
     Dosage: 0.3 MG, 1X/DAY
  3. PREMARIN [Suspect]
     Active Substance: ESTROGENS, CONJUGATED
     Dosage: 0.3 MG, DAILY
     Route: 048
  4. PREMPRO [Suspect]
     Active Substance: ESTROGENS, CONJUGATED\MEDROXYPROGESTERONE ACETATE
     Indication: Hormone replacement therapy
     Dosage: 1 DF, CYCLIC  (.625MG/2.5MG; TAKE ONCE DAILY FOR 28 DAYS BY MOUTH AND OFF FOR A COUPLE OF DAYS)
     Route: 048

REACTIONS (1)
  - Drug dependence [Unknown]
